FAERS Safety Report 11966251 (Version 1)
Quarter: 2016Q1

REPORT INFORMATION
  Report Type: Report from Study
  Country: BR (occurrence: BR)
  Receive Date: 20160127
  Receipt Date: 20160127
  Transmission Date: 20160526
  Serious: Yes (Other)
  Sender: FDA-Public Use
  Company Number: BR-BRISTOL-MYERS SQUIBB COMPANY-BMS-2016-003965

PATIENT
  Age: 68 Year
  Sex: Female

DRUGS (2)
  1. CETUXIMAB [Suspect]
     Active Substance: CETUXIMAB
     Indication: COLORECTAL CANCER
     Dosage: 150 MG,1 IN 15D
     Route: 042
     Dates: start: 201404
  2. OMEPRAZOLE. [Concomitant]
     Active Substance: OMEPRAZOLE
     Indication: ABDOMINAL DISCOMFORT
     Dosage: UNK
     Route: 065

REACTIONS (8)
  - Abdominal pain [Unknown]
  - Dry mouth [Unknown]
  - Saliva altered [Unknown]
  - Dysentery [Unknown]
  - Blood glucose abnormal [Unknown]
  - Acne [Not Recovered/Not Resolved]
  - Sensory loss [Recovering/Resolving]
  - Stomatitis [Unknown]

NARRATIVE: CASE EVENT DATE: 201512
